FAERS Safety Report 4816502-X (Version None)
Quarter: 2005Q4

REPORT INFORMATION
  Report Type: 
  Country: None (occurrence: None)
  Receive Date: 20051028
  Receipt Date: 20051019
  Transmission Date: 20060501
  Serious: Yes (Death)
  Sender: FDA-Public Use
  Company Number: 2005-10-1349

PATIENT
  Age: 51 Year
  Sex: Female
  Weight: 70.3075 kg

DRUGS (11)
  1. PEG-INTRON [Suspect]
     Indication: HEPATITIS C
     Dosage: SUBCUTANEOUS
     Route: 058
     Dates: start: 20050722, end: 20050101
  2. RIBAVIRIN [Suspect]
     Indication: HEPATITIS C
     Dosage: ORAL
     Route: 048
     Dates: start: 20050722, end: 20050101
  3. ACTOS (PIOGLITAZONE HCL) TABLETS [Concomitant]
  4. ASPIRIN CHEWABLE TABLETS [Concomitant]
  5. KLONOPIN [Concomitant]
  6. LEXAPRO [Concomitant]
  7. METFORMIN HCL [Concomitant]
  8. ACETAMINOPHEN/OXYCODONE CAPSULES [Concomitant]
  9. PREVACID CAPSULES [Concomitant]
  10. TYLENOL TABLETS [Concomitant]
  11. ANTIANXIETY AGENT/TRANQUILIZER (NOS) [Concomitant]

REACTIONS (1)
  - ABDOMINAL PAIN UPPER [None]
